FAERS Safety Report 13091542 (Version 1)
Quarter: 2017Q1

REPORT INFORMATION
  Report Type: Spontaneous
  Country: US (occurrence: US)
  Receive Date: 20170106
  Receipt Date: 20170106
  Transmission Date: 20170428
  Serious: Yes (Hospitalization, Other)
  Sender: FDA-Public Use
  Company Number: PHHY2016US179620

PATIENT
  Age: 69 Year
  Sex: Female

DRUGS (3)
  1. EVEROLIMUS [Suspect]
     Active Substance: EVEROLIMUS
     Dosage: 7.5 MG, UNK
     Route: 065
  2. EXEMESTANE. [Suspect]
     Active Substance: EXEMESTANE
     Indication: BREAST CANCER METASTATIC
     Dosage: 25 MG, UNK
     Route: 065
  3. EVEROLIMUS [Suspect]
     Active Substance: EVEROLIMUS
     Indication: BREAST CANCER METASTATIC
     Dosage: 10 MG, QD
     Route: 065

REACTIONS (8)
  - Inflammation [Unknown]
  - Pneumocystis jirovecii pneumonia [Unknown]
  - Lymphopenia [Recovered/Resolved]
  - Dyspnoea exertional [Recovered/Resolved]
  - Neutropenia [Unknown]
  - Pyrexia [Recovered/Resolved]
  - Cough [Unknown]
  - Fatigue [Unknown]
